FAERS Safety Report 4319718-4 (Version None)
Quarter: 2004Q1

REPORT INFORMATION
  Report Type: 
  Country: None (occurrence: None)
  Receive Date: 20040316
  Receipt Date: 20040302
  Transmission Date: 20041129
  Serious: Yes (Other)
  Sender: FDA-Public Use
  Company Number: US-JNJFOC-20031100788

PATIENT
  Sex: Male

DRUGS (1)
  1. REMICADE [Suspect]
     Indication: RHEUMATOID ARTHRITIS
     Dosage: RECEIVED APPROXIMATELY THREE INFUSIONS
     Dates: start: 20021031

REACTIONS (4)
  - ANHEDONIA [None]
  - PAIN [None]
  - POLYTRAUMATISM [None]
  - TUBERCULOSIS [None]
